FAERS Safety Report 12632469 (Version 2)
Quarter: 2016Q3

REPORT INFORMATION
  Report Type: Spontaneous
  Country: US (occurrence: US)
  Receive Date: 20160808
  Receipt Date: 20160808
  Transmission Date: 20161109
  Serious: No
  Sender: FDA-Public Use
  Company Number: US-BEH-2016063000

PATIENT
  Age: 43 Year
  Sex: Female
  Weight: 108 kg

DRUGS (26)
  1. MOBIC [Concomitant]
     Active Substance: MELOXICAM
  2. VENTOLIN [Concomitant]
     Active Substance: ALBUTEROL SULFATE
  3. TYLENOL EXTRA STRENGTH [Concomitant]
     Active Substance: ACETAMINOPHEN
  4. HIZENTRA [Suspect]
     Active Substance: HUMAN IMMUNOGLOBULIN G
     Indication: STATUS ASTHMATICUS
     Route: 058
  5. LMX [Concomitant]
     Active Substance: LIDOCAINE
  6. SINGULAIR [Concomitant]
     Active Substance: MONTELUKAST SODIUM
  7. ONDANSETRON [Concomitant]
     Active Substance: ONDANSETRON
  8. LASIX [Concomitant]
     Active Substance: FUROSEMIDE
  9. CYCLOBENZAPRINE [Concomitant]
     Active Substance: CYCLOBENZAPRINE
  10. CYTOMEL [Concomitant]
     Active Substance: LIOTHYRONINE SODIUM
  11. SUCRALFATE. [Concomitant]
     Active Substance: SUCRALFATE
  12. ELMIRON [Concomitant]
     Active Substance: PENTOSAN POLYSULFATE SODIUM
  13. DIPHENHYDRAMINE. [Concomitant]
     Active Substance: DIPHENHYDRAMINE
  14. IPRATROPIUM ALBUTEROL [Concomitant]
     Active Substance: ALBUTEROL\IPRATROPIUM
  15. HIZENTRA [Suspect]
     Active Substance: HUMAN IMMUNOGLOBULIN G
     Indication: IMMUNODEFICIENCY
     Route: 058
  16. POTASSIUM [Concomitant]
     Active Substance: POTASSIUM
  17. BLACK COHOSH [Concomitant]
     Active Substance: BLACK COHOSH
  18. XOLAIR [Concomitant]
     Active Substance: OMALIZUMAB
  19. EPIPEN [Concomitant]
     Active Substance: EPINEPHRINE
  20. ZANTAC [Concomitant]
     Active Substance: RANITIDINE HYDROCHLORIDE
  21. VITAMIN D3 [Concomitant]
     Active Substance: CHOLECALCIFEROL
  22. PLAQUENIL [Concomitant]
     Active Substance: HYDROXYCHLOROQUINE SULFATE
  23. FLONASE [Concomitant]
     Active Substance: FLUTICASONE PROPIONATE
  24. SPIRIVA [Concomitant]
     Active Substance: TIOTROPIUM BROMIDE MONOHYDRATE
  25. ALLEGRA [Concomitant]
     Active Substance: FEXOFENADINE HYDROCHLORIDE
  26. SYMBICORT [Concomitant]
     Active Substance: BUDESONIDE\FORMOTEROL FUMARATE DIHYDRATE

REACTIONS (1)
  - Sinusitis [Unknown]

NARRATIVE: CASE EVENT DATE: 201512
